FAERS Safety Report 26217281 (Version 1)
Quarter: 2025Q4

REPORT INFORMATION
  Report Type: Report from Study
  Country: KR (occurrence: KR)
  Receive Date: 20251231
  Receipt Date: 20251231
  Transmission Date: 20260117
  Serious: Yes (Life-Threatening, Other)
  Sender: GLAXOSMITHKLINE
  Company Number: KR-GLAXOSMITHKLINE INC-KR2025GSK167269

PATIENT
  Age: 22 Year
  Sex: Female
  Weight: 47.35 kg

DRUGS (5)
  1. DOSTARLIMAB [Suspect]
     Active Substance: DOSTARLIMAB
     Indication: Endometrial cancer
     Dosage: 500 MG, Q5W
  2. PACLITAXEL [Suspect]
     Active Substance: PACLITAXEL
     Indication: Endometrial cancer
     Dosage: 241 MG, SINGLE
  3. PACLITAXEL [Suspect]
     Active Substance: PACLITAXEL
     Dosage: 247 MG, SINGLE
  4. CISPLATIN [Suspect]
     Active Substance: CISPLATIN
     Indication: Endometrial cancer
     Dosage: 566 MG, SINGLE
  5. CISPLATIN [Suspect]
     Active Substance: CISPLATIN
     Dosage: 680 MG, SINGLE

REACTIONS (1)
  - Anaphylactic reaction [Recovered/Resolved]

NARRATIVE: CASE EVENT DATE: 20250920
